FAERS Safety Report 11200144 (Version 2)
Quarter: 2015Q3

REPORT INFORMATION
  Report Type: Spontaneous
  Country: DK (occurrence: DK)
  Receive Date: 20150618
  Receipt Date: 20150709
  Transmission Date: 20151125
  Serious: Yes (Life-Threatening, Hospitalization, Disabling, Other)
  Sender: FDA-Public Use
  Company Number: DK-PFIZER INC-2015187263

PATIENT
  Age: 63 Year
  Sex: Male

DRUGS (1)
  1. FRAGMIN [Suspect]
     Active Substance: DALTEPARIN SODIUM
     Indication: INTRACARDIAC THROMBUS
     Dates: start: 20140910, end: 20140923

REACTIONS (24)
  - Pain in extremity [Unknown]
  - Gangrene [Unknown]
  - Cardiac fibrillation [Recovered/Resolved]
  - Heart rate decreased [Unknown]
  - Skin discolouration [Unknown]
  - Necrosis [Unknown]
  - Disorientation [Unknown]
  - Pain [Unknown]
  - C-reactive protein increased [Unknown]
  - Urinary incontinence [Unknown]
  - Poor peripheral circulation [Unknown]
  - Heparin-induced thrombocytopenia [Unknown]
  - Generalised oedema [Unknown]
  - Visual acuity reduced [Unknown]
  - Acute myocardial infarction [Unknown]
  - Leg amputation [Unknown]
  - Postoperative thrombosis [Unknown]
  - Faecal incontinence [Unknown]
  - Pallor [Unknown]
  - Brain injury [Unknown]
  - Aortic thrombosis [Unknown]
  - Wheelchair user [Unknown]
  - Peripheral coldness [Unknown]
  - Thrombosis [Unknown]

NARRATIVE: CASE EVENT DATE: 201409
